FAERS Safety Report 9908853 (Version 1)
Quarter: 2014Q1

REPORT INFORMATION
  Report Type: Spontaneous
  Country: IN (occurrence: IN)
  Receive Date: 20140219
  Receipt Date: 20140219
  Transmission Date: 20141002
  Serious: Yes (Death)
  Sender: FDA-Public Use
  Company Number: IN-ASTELLAS-2014US001537

PATIENT
  Age: 48 Year
  Sex: Male

DRUGS (3)
  1. AMBISOME [Suspect]
     Indication: MENINGITIS CRYPTOCOCCAL
     Dosage: 1 MG/KG, UID/QD
     Route: 042
  2. AMBISOME [Suspect]
     Indication: CRYPTOCOCCOSIS
  3. MANNITOL [Concomitant]
     Indication: PRODUCT USED FOR UNKNOWN INDICATION
     Dosage: UNK
     Route: 065

REACTIONS (2)
  - Drug ineffective [Unknown]
  - Pneumonia aspiration [Fatal]
